FAERS Safety Report 5232485-5 (Version None)
Quarter: 2007Q1

REPORT INFORMATION
  Report Type: 
  Country: None (occurrence: None)
  Receive Date: 20061205
  Receipt Date: 20061009
  Transmission Date: 20070707
  Serious: Yes (Death)
  Sender: FDA-Public Use
  Company Number: 06P-163-0346472-00

PATIENT
  Age: 61 Year
  Sex: Female

DRUGS (1)
  1. TRICOR [Suspect]
     Dosage: 145 MG

REACTIONS (1)
  - DEATH [None]
